FAERS Safety Report 4805085-6 (Version None)
Quarter: 2005Q4

REPORT INFORMATION
  Report Type: 
  Country: None (occurrence: None)
  Receive Date: 20051017
  Receipt Date: 20051007
  Transmission Date: 20060501
  Serious: Yes (Hospitalization)
  Sender: FDA-Public Use
  Company Number: 2005-07-1668

PATIENT
  Age: 72 Year
  Sex: Female
  Weight: 56 kg

DRUGS (9)
  1. PEG-INTRON (PEGINTERFERON ALFA-2B) INJECTABLE POWDER [Suspect]
     Indication: HEPATITIS C
     Dosage: 60 MCG QW SUBCUTANEOUS; 40 MCG QW SUBCUTANEOUS
     Route: 058
     Dates: start: 20050307, end: 20050321
  2. PEG-INTRON (PEGINTERFERON ALFA-2B) INJECTABLE POWDER [Suspect]
     Indication: HEPATITIS C
     Dosage: 60 MCG QW SUBCUTANEOUS; 40 MCG QW SUBCUTANEOUS
     Route: 058
     Dates: start: 20050307, end: 20050629
  3. PEG-INTRON (PEGINTERFERON ALFA-2B) INJECTABLE POWDER [Suspect]
     Indication: HEPATITIS C
     Dosage: 60 MCG QW SUBCUTANEOUS; 40 MCG QW SUBCUTANEOUS
     Route: 058
     Dates: start: 20050328, end: 20050629
  4. REBETOL [Suspect]
     Indication: HEPATITIS C
     Dosage: 400 MG ORAL; 200 MG ORAL
     Route: 048
     Dates: start: 20050307, end: 20050322
  5. REBETOL [Suspect]
     Indication: HEPATITIS C
     Dosage: 400 MG ORAL; 200 MG ORAL
     Route: 048
     Dates: start: 20050307, end: 20050706
  6. REBETOL [Suspect]
     Indication: HEPATITIS C
     Dosage: 400 MG ORAL; 200 MG ORAL
     Route: 048
     Dates: start: 20050323, end: 20050706
  7. CONIEL (BENIDIPINE HCL) TABLETS [Concomitant]
  8. URSO TABLETS [Concomitant]
  9. MENATETRENONE CAPSULES [Concomitant]

REACTIONS (11)
  - ANAEMIA [None]
  - DEPRESSED LEVEL OF CONSCIOUSNESS [None]
  - DIZZINESS [None]
  - FALL [None]
  - HEAD INJURY [None]
  - HEADACHE [None]
  - PLATELET COUNT DECREASED [None]
  - SINUS TACHYCARDIA [None]
  - SUBDURAL HAEMATOMA [None]
  - VENTRICULAR EXTRASYSTOLES [None]
  - VOMITING [None]
